FAERS Safety Report 4561077-6 (Version None)
Quarter: 2005Q1

REPORT INFORMATION
  Report Type: 
  Country: None (occurrence: None)
  Receive Date: 20050126
  Receipt Date: 20041129
  Transmission Date: 20050727
  Serious: No
  Sender: FDA-Public Use
  Company Number: US-BRISTOL-MYERS SQUIBB COMPANY-12778130

PATIENT
  Sex: Female

DRUGS (1)
  1. GLUCOPHAGE [Suspect]
     Indication: HYPERINSULINAEMIA
     Dosage: INITIALLY STARTED ON 500 MG DAILY.
     Route: 048

REACTIONS (1)
  - NAUSEA [None]
